FAERS Safety Report 8074933-1 (Version None)
Quarter: 2012Q1

REPORT INFORMATION
  Report Type: 
  Country: None (occurrence: None)
  Receive Date: 20120127
  Receipt Date: 20120116
  Transmission Date: 20120608
  Serious: Yes (Other)
  Sender: FDA-Public Use
  Company Number: DE-TEVA-317700GER

PATIENT
  Sex: Female

DRUGS (4)
  1. ACETAMINOPHEN [Concomitant]
     Indication: PAIN
     Route: 048
     Dates: start: 20110101
  2. COPAXONE [Suspect]
     Indication: MULTIPLE SCLEROSIS
     Dates: start: 20110131
  3. IBUPROFEN [Concomitant]
     Indication: PAIN
     Route: 048
  4. NOVALGIN [Concomitant]
     Indication: PAIN
     Route: 048

REACTIONS (1)
  - FAT NECROSIS [None]
